FAERS Safety Report 10749312 (Version 1)
Quarter: 2015Q1

REPORT INFORMATION
  Report Type: Spontaneous
  Country: US (occurrence: None)
  Receive Date: 20150120
  Receipt Date: 20150120
  Transmission Date: 20150721
  Serious: No
  Sender: FDA-Public Use
  Company Number: AEGR000776

PATIENT
  Age: 43 Year
  Sex: Male
  Weight: 101.1 kg

DRUGS (3)
  1. JUXTAPID [Suspect]
     Active Substance: LOMITAPIDE MESYLATE
     Indication: TYPE IIA HYPERLIPIDAEMIA
     Dosage: 7/11/2014 TO 9/15/2001
     Dates: start: 20140711
  2. LIVALO (PITAVASTATIN CALCIUM) [Concomitant]
  3. FENOFIBRATE) [Concomitant]

REACTIONS (2)
  - Nasopharyngitis [None]
  - Influenza like illness [None]

NARRATIVE: CASE EVENT DATE: 201409
